FAERS Safety Report 5987541-0 (Version None)
Quarter: 2008Q4

REPORT INFORMATION
  Report Type: 
  Country: None (occurrence: None)
  Receive Date: 20081209
  Receipt Date: 20081112
  Transmission Date: 20090506
  Serious: No
  Sender: FDA-Public Use
  Company Number: US-JNJFOC-20081103340

PATIENT
  Sex: Female
  Weight: 73.71 kg

DRUGS (7)
  1. INVEGA [Suspect]
     Route: 048
  2. INVEGA [Suspect]
     Indication: BIPOLAR DISORDER
     Route: 048
  3. WELLBUTRIN [Concomitant]
     Indication: DEPRESSION
     Route: 048
  4. KLONOPIN [Concomitant]
     Indication: ANXIETY
     Route: 048
  5. FLONASE [Concomitant]
     Indication: ASTHMA
     Route: 055
  6. PROVENTIL [Concomitant]
     Indication: ASTHMA
  7. CELEXA [Concomitant]
     Indication: ANXIETY
     Route: 048

REACTIONS (4)
  - AMENORRHOEA [None]
  - BLOOD PROLACTIN INCREASED [None]
  - BREAST DISCHARGE [None]
  - WEIGHT INCREASED [None]
